FAERS Safety Report 24943286 (Version 1)
Quarter: 2025Q1

REPORT INFORMATION
  Report Type: Spontaneous
  Country: US (occurrence: US)
  Receive Date: 20250207
  Receipt Date: 20250207
  Transmission Date: 20250409
  Serious: Yes (Other)
  Sender: TEVA
  Company Number: US-TEVA-VS-3294278

PATIENT
  Age: 79 Year
  Sex: Female
  Weight: 63.05 kg

DRUGS (1)
  1. WARFARIN [Suspect]
     Active Substance: WARFARIN
     Indication: Product used for unknown indication
     Dosage: TEVA,TAKING 1 TABLET BY MOUTH ON TUESDAY, THURSDAY AND SATURDAY ,AND HALF ?A TABLET ALL OTHER DAYS
     Route: 048
     Dates: end: 2024

REACTIONS (3)
  - Oxygen saturation decreased [Recovered/Resolved]
  - Renal disorder [Recovering/Resolving]
  - Contusion [Recovering/Resolving]
